FAERS Safety Report 7425841-8 (Version None)
Quarter: 2011Q2

REPORT INFORMATION
  Report Type: 
  Country: None (occurrence: None)
  Receive Date: 20110420
  Receipt Date: 20110418
  Transmission Date: 20111010
  Serious: Yes (Hospitalization, Other)
  Sender: FDA-Public Use
  Company Number: US-ROCHE-503113

PATIENT
  Sex: Male
  Weight: 65.8 kg

DRUGS (2)
  1. ZITHROMAX [Concomitant]
     Indication: BRONCHITIS
     Dates: start: 20000214
  2. ACCUTANE [Suspect]
     Indication: ACNE
     Dosage: DOSING REGIMEN 40 MG ON ODD DAYS AND 80 MG ON EVEN DAYS.
     Route: 065
     Dates: start: 19991208, end: 20000509

REACTIONS (27)
  - GASTROINTESTINAL HAEMORRHAGE [None]
  - COLITIS ULCERATIVE [None]
  - HYPERTHYROIDISM [None]
  - MESENTERIC VEIN THROMBOSIS [None]
  - ILEUS PARALYTIC [None]
  - DEPRESSION [None]
  - PORTAL VEIN THROMBOSIS [None]
  - ILEAL STENOSIS [None]
  - WEIGHT DECREASED [None]
  - IRON DEFICIENCY ANAEMIA [None]
  - ANORECTAL STENOSIS [None]
  - TACHYCARDIA [None]
  - CROHN'S DISEASE [None]
  - POUCHITIS [None]
  - INFLAMMATORY BOWEL DISEASE [None]
  - VENOUS THROMBOSIS LIMB [None]
  - PULMONARY EMBOLISM [None]
  - HIATUS HERNIA [None]
  - DEEP VEIN THROMBOSIS [None]
  - COLITIS [None]
  - ANAEMIA [None]
  - PNEUMOPERITONEUM [None]
  - SMALL INTESTINAL OBSTRUCTION [None]
  - FAILURE TO THRIVE [None]
  - PARAESTHESIA [None]
  - CHEST PAIN [None]
  - BRADYCARDIA [None]
